FAERS Safety Report 23143361 (Version 1)
Quarter: 2023Q4

REPORT INFORMATION
  Report Type: Spontaneous
  Country: US (occurrence: US)
  Receive Date: 20231103
  Receipt Date: 20231103
  Transmission Date: 20240110
  Serious: No
  Sender: FDA-Public Use
  Company Number: US-MYOVANT SCIENCES GMBH-2023MYSCI0800055

PATIENT
  Sex: Male

DRUGS (4)
  1. ORGOVYX [Suspect]
     Active Substance: RELUGOLIX
     Indication: Prostate cancer
     Dosage: 120 MILLIGRAM, QD
     Route: 048
  2. CYANOCOBALAMIN [Concomitant]
     Active Substance: CYANOCOBALAMIN
     Indication: Red blood cell count abnormal
     Dosage: ONCE A MONTH SINCE 1992-1993
     Route: 065
  3. PREDNISONE [Concomitant]
     Active Substance: PREDNISONE
     Indication: Steroid therapy
     Dosage: 1 DOSAGE FORM, QD WITH MEALS
     Route: 065
     Dates: start: 2023
  4. ZYTIGA [Concomitant]
     Active Substance: ABIRATERONE ACETATE
     Indication: Prostate cancer
     Dosage: 1000 MILLIGRAM, QD ON EMPTY STOMACH, STARTED YEAR AND A HALF AGO
     Route: 065

REACTIONS (4)
  - Rash [Unknown]
  - Genital rash [Unknown]
  - Prostatic specific antigen increased [Recovered/Resolved]
  - Incorrect dose administered [Recovered/Resolved]
